FAERS Safety Report 8229717-8 (Version None)
Quarter: 2012Q1

REPORT INFORMATION
  Report Type: 
  Country: None (occurrence: None)
  Receive Date: 20120322
  Receipt Date: 20120315
  Transmission Date: 20120608
  Serious: Yes (Hospitalization, Disabling)
  Sender: FDA-Public Use
  Company Number: US-MERCK-1108USA02810

PATIENT
  Sex: Female

DRUGS (8)
  1. CALCIUM (UNSPECIFIED) [Concomitant]
     Route: 065
     Dates: start: 19970101
  2. FOSAMAX [Suspect]
     Indication: OSTEOPOROSIS
     Route: 048
     Dates: start: 19970101, end: 20080213
  3. VITAMIN D (UNSPECIFIED) [Concomitant]
     Route: 048
     Dates: start: 20000101
  4. VITAMIN E [Concomitant]
     Route: 048
     Dates: start: 19990101
  5. ALENDRONATE SODIUM [Suspect]
     Indication: OSTEOPOROSIS PROPHYLAXIS
     Route: 048
     Dates: start: 20080213, end: 20091103
  6. ALENDRONATE SODIUM [Suspect]
     Indication: OSTEOPOROSIS
     Route: 048
     Dates: start: 20080213, end: 20091103
  7. VITAMINS (UNSPECIFIED) [Concomitant]
     Route: 065
     Dates: start: 19970101
  8. FOSAMAX [Suspect]
     Indication: OSTEOPOROSIS PROPHYLAXIS
     Route: 048
     Dates: start: 19970101, end: 20080213

REACTIONS (10)
  - FEMUR FRACTURE [None]
  - UTERINE DISORDER [None]
  - ANXIETY [None]
  - ROAD TRAFFIC ACCIDENT [None]
  - BLOOD CHOLESTEROL INCREASED [None]
  - DENTAL CARIES [None]
  - LOW TURNOVER OSTEOPATHY [None]
  - HYPERTENSION [None]
  - VITAMIN D DEFICIENCY [None]
  - WRIST FRACTURE [None]
